FAERS Safety Report 9254208 (Version 3)
Quarter: 2014Q1

REPORT INFORMATION
  Report Type: Spontaneous
  Country: IE (occurrence: IE)
  Receive Date: 20130425
  Receipt Date: 20140224
  Transmission Date: 20141002
  Serious: Yes (Death, Hospitalization, Other)
  Sender: FDA-Public Use
  Company Number: PHFR2013IE002209

PATIENT
  Age: 59 Year
  Sex: Male

DRUGS (8)
  1. CLOZARIL [Suspect]
     Indication: SCHIZOPHRENIA
     Dosage: 162.5 MG, (75 MGS MANE AND 87.5 NOCTE)
     Route: 048
     Dates: start: 20030403
  2. EPILIM CHRONO [Concomitant]
     Dosage: 300 MG, MANE
  3. ASPIRIN [Concomitant]
     Dosage: 75 MG, MANE
  4. PRAVASTATIN [Concomitant]
     Dosage: 10 MG, NOCTE
  5. AMLODIPINE [Concomitant]
     Dosage: 5 MG, MANE
  6. COVERSYL                                /BEL/ [Concomitant]
     Dosage: 10 MG, MANE
  7. FRUSEMIDE [Concomitant]
     Dosage: 40 MG, MANE
  8. HYOSCINE HYDROBROMIDE [Concomitant]
     Dosage: 300 UG, UNK

REACTIONS (14)
  - Myocardial infarction [Fatal]
  - Arteriosclerosis coronary artery [Fatal]
  - Myocardial ischaemia [Fatal]
  - Emphysema [Fatal]
  - Hypertension [Fatal]
  - Overweight [Fatal]
  - Bronchopneumonia [Fatal]
  - Sudden death [Fatal]
  - Unresponsive to stimuli [Unknown]
  - Type 2 diabetes mellitus [Unknown]
  - Blood glucose increased [Unknown]
  - Blood sodium decreased [Unknown]
  - Blood urea decreased [Unknown]
  - Gamma-glutamyltransferase increased [Unknown]
